FAERS Safety Report 5069935-3 (Version None)
Quarter: 2006Q3

REPORT INFORMATION
  Report Type: 
  Country: None (occurrence: None)
  Receive Date: 20060731
  Receipt Date: 20060703
  Transmission Date: 20061208
  Serious: Yes (Hospitalization)
  Sender: FDA-Public Use
  Company Number: 6024019

PATIENT
  Age: 26 Year
  Sex: Male

DRUGS (1)
  1. DICLOFENAC (DICLOFENAC) [Suspect]
     Indication: RENAL COLIC
     Dosage: 12 DOSES 75 MG, REPEATEDLY WITH 30-MIN INTERVALS), INTRAMUSCULAR
     Route: 030

REACTIONS (8)
  - ANAEMIA [None]
  - BLOOD ALKALINE PHOSPHATASE INCREASED [None]
  - BLOOD LACTATE DEHYDROGENASE INCREASED [None]
  - BONE MARROW NECROSIS [None]
  - LEUKOPENIA [None]
  - NEUTROPENIA [None]
  - OVERDOSE [None]
  - PYREXIA [None]
